FAERS Safety Report 24942154 (Version 3)
Quarter: 2025Q1

REPORT INFORMATION
  Report Type: Spontaneous
  Country: JP (occurrence: JP)
  Receive Date: 20250207
  Receipt Date: 20250220
  Transmission Date: 20250408
  Serious: Yes (Hospitalization)
  Sender: SANOFI AVENTIS
  Company Number: JP-SA-2025SA038686

PATIENT
  Age: 74 Year
  Sex: Male

DRUGS (8)
  1. RIFAMPIN [Suspect]
     Active Substance: RIFAMPIN
     Indication: Disseminated Bacillus Calmette-Guerin infection
  2. LEVOFLOXACIN [Suspect]
     Active Substance: LEVOFLOXACIN
     Indication: Disseminated Bacillus Calmette-Guerin infection
  3. ISONIAZID [Concomitant]
     Active Substance: ISONIAZID
  4. ETHAMBUTOL HYDROCHLORIDE [Concomitant]
     Active Substance: ETHAMBUTOL HYDROCHLORIDE
  5. AMLODIPINE [Concomitant]
     Active Substance: AMLODIPINE BESYLATE
  6. VALSARTAN [Concomitant]
     Active Substance: VALSARTAN
  7. TAMSULOSIN HYDROCHLORIDE [Concomitant]
     Active Substance: TAMSULOSIN HYDROCHLORIDE
  8. RIFABUTIN [Concomitant]
     Active Substance: RIFABUTIN

REACTIONS (11)
  - Aneurysm [Unknown]
  - Femoral artery aneurysm [Unknown]
  - Slow response to stimuli [Unknown]
  - Abscess limb [Unknown]
  - Somnolence [Unknown]
  - Leukocytosis [Unknown]
  - Syncope [Unknown]
  - Swelling [Unknown]
  - Carotid artery aneurysm [Unknown]
  - Aortic aneurysm [Unknown]
  - Dysphagia [Unknown]
